FAERS Safety Report 8057018-X (Version None)
Quarter: 2012Q1

REPORT INFORMATION
  Report Type: 
  Country: None (occurrence: None)
  Receive Date: 20120119
  Receipt Date: 20120113
  Transmission Date: 20120608
  Serious: No
  Sender: FDA-Public Use
  Company Number: US-B.I. PHARMACEUTICALS,INC./RIDGEFIELD-2012-BP-00848BP

PATIENT
  Sex: Female

DRUGS (11)
  1. MULTI-VITAMIN [Concomitant]
     Indication: SUPPLEMENTATION THERAPY
     Route: 048
  2. IBUPROFEN (ADVIL) [Concomitant]
     Indication: FIBROMYALGIA
     Route: 048
  3. ASCORBIC ACID [Concomitant]
     Indication: SUPPLEMENTATION THERAPY
     Route: 048
  4. SPIRIVA [Suspect]
     Indication: ASTHMA
     Dosage: 18 MCG
     Route: 055
     Dates: start: 20111120, end: 20111211
  5. SPIRIVA [Suspect]
     Dosage: 18 MCG
     Route: 055
     Dates: start: 20120111
  6. ZIAC [Concomitant]
     Indication: HYPERTENSION
     Route: 048
     Dates: start: 20070101
  7. VITAMIN D [Concomitant]
     Indication: SUPPLEMENTATION THERAPY
     Route: 048
  8. ACETAMINOPHEN [Concomitant]
     Indication: FIBROMYALGIA
     Route: 048
  9. BENICAR [Concomitant]
     Indication: HYPERTENSION
     Route: 048
     Dates: start: 20100101
  10. XANAX [Concomitant]
     Indication: PANIC DISORDER
     Route: 048
     Dates: start: 19970101
  11. ADVAIR DISKUS 100/50 [Concomitant]
     Indication: ASTHMA
     Route: 055
     Dates: start: 20020101

REACTIONS (2)
  - DYSPEPSIA [None]
  - INSOMNIA [None]
